FAERS Safety Report 7294785-7 (Version None)
Quarter: 2011Q1

REPORT INFORMATION
  Report Type: 
  Country: None (occurrence: None)
  Receive Date: 20110216
  Receipt Date: 20110207
  Transmission Date: 20110831
  Serious: Yes (Hospitalization, Other)
  Sender: FDA-Public Use
  Company Number: AT-JNJFOC-20110104129

PATIENT
  Sex: Female
  Weight: 56 kg

DRUGS (4)
  1. REMICADE [Suspect]
     Indication: CROHN'S DISEASE
     Dosage: RECEIVED 7 INFUSIONS
     Route: 042
  2. FOLSAN [Concomitant]
     Indication: CROHN'S DISEASE
  3. AKTIFERRIN [Concomitant]
     Indication: CROHN'S DISEASE
  4. CORTISON [Concomitant]
     Indication: CROHN'S DISEASE

REACTIONS (2)
  - DRUG EXPOSURE DURING PREGNANCY [None]
  - COLONIC STENOSIS [None]
